FAERS Safety Report 23245751 (Version 1)
Quarter: 2023Q4

REPORT INFORMATION
  Report Type: Spontaneous
  Country: US (occurrence: US)
  Receive Date: 20231130
  Receipt Date: 20231130
  Transmission Date: 20240109
  Serious: Yes (Hospitalization, Other)
  Sender: FDA-Public Use
  Company Number: US-OPELLA-2023OHG016125

PATIENT
  Age: 78 Year
  Sex: Female

DRUGS (1)
  1. GOLD BOND ORIGINAL STRENGTH POWDER [Suspect]
     Active Substance: MENTHOL\ZINC OXIDE
     Indication: Product used for unknown indication

REACTIONS (5)
  - Epithelioid mesothelioma [Unknown]
  - Respiratory failure [Unknown]
  - Asthenia [Unknown]
  - Dyspnoea [Unknown]
  - Emotional distress [Unknown]

NARRATIVE: CASE EVENT DATE: 20230112
